FAERS Safety Report 14493420 (Version 3)
Quarter: 2018Q1

REPORT INFORMATION
  Report Type: Spontaneous
  Country: JP (occurrence: JP)
  Receive Date: 20180206
  Receipt Date: 20180223
  Transmission Date: 20180509
  Serious: Yes (Hospitalization, Other)
  Sender: FDA-Public Use
  Company Number: JP-ASTRAZENECA-2018SE15103

PATIENT
  Age: 75 Year
  Sex: Male
  Weight: 74 kg

DRUGS (9)
  1. METFORMIN HYDROCHLORIDE. [Suspect]
     Active Substance: METFORMIN HYDROCHLORIDE
     Indication: DIABETES MELLITUS
     Route: 048
     Dates: start: 20171112, end: 20171115
  2. OYPALOMIN [Suspect]
     Active Substance: IOPAMIDOL
     Indication: UROGRAM
     Dosage: DOSE UNKNOWN, USED ONCE AS CONTRAST AGENT
     Route: 042
     Dates: start: 20171111, end: 20171111
  3. METFORMIN HYDROCHLORIDE. [Suspect]
     Active Substance: METFORMIN HYDROCHLORIDE
     Indication: DIABETES MELLITUS
     Route: 048
     Dates: start: 20171103, end: 201711
  4. MAGMITT [Suspect]
     Active Substance: MAGNESIUM OXIDE
     Indication: CONSTIPATION PROPHYLAXIS
     Route: 048
     Dates: end: 20171120
  5. CRESTOR [Suspect]
     Active Substance: ROSUVASTATIN CALCIUM
     Indication: HYPERLIPIDAEMIA
     Route: 048
     Dates: end: 20171120
  6. FINIBAX [Suspect]
     Active Substance: DORIPENEM MONOHYDRATE
     Indication: PYELONEPHRITIS
     Route: 042
     Dates: start: 20171117, end: 20171120
  7. METGLUCO [Concomitant]
     Active Substance: METFORMIN HYDROCHLORIDE
     Dates: start: 20171112, end: 20171115
  8. ZOSYN [Concomitant]
     Active Substance: PIPERACILLIN SODIUM\TAZOBACTAM SODIUM
     Indication: ANTIBIOTIC THERAPY
     Dosage: DOSE UNKNOWN
     Route: 065
     Dates: start: 20171020, end: 20171116
  9. REBAMIPIDE [Suspect]
     Active Substance: REBAMIPIDE
     Indication: PROPHYLAXIS AGAINST GASTROINTESTINAL ULCER
     Route: 048
     Dates: end: 20171120

REACTIONS (3)
  - Tubulointerstitial nephritis [Unknown]
  - Drug eruption [Recovering/Resolving]
  - Acute kidney injury [Recovering/Resolving]

NARRATIVE: CASE EVENT DATE: 20171120
